FAERS Safety Report 5217646-3 (Version None)
Quarter: 2006Q4

REPORT INFORMATION
  Report Type: 
  Country: None (occurrence: None)
  Receive Date: 20061130
  Receipt Date: 20060614
  Transmission Date: 20070319
  Serious: Yes (Other)
  Sender: FDA-Public Use
  Company Number: US200512003917

PATIENT
  Age: 50 Year
  Sex: Female
  Weight: 90.7 kg

DRUGS (6)
  1. ZYPREXA [Suspect]
     Indication: DEPRESSION
     Dosage: SEE IMAGE
     Route: 048
     Dates: start: 20000707, end: 20020513
  2. ZYPREXA [Suspect]
     Indication: DEPRESSION
     Dosage: SEE IMAGE
     Route: 048
     Dates: start: 20020513, end: 20041020
  3. ZYPREXA [Suspect]
     Indication: DEPRESSION
     Dosage: SEE IMAGE
     Route: 048
     Dates: start: 20041020
  4. RISPERDAL [Concomitant]
  5. PROZAC [Concomitant]
  6. LASIX (FUROSEMIDE, FUROSEMIDE SODIUM) [Concomitant]

REACTIONS (2)
  - DIABETES MELLITUS NON-INSULIN-DEPENDENT [None]
  - WEIGHT INCREASED [None]
